FAERS Safety Report 8254924-8 (Version None)
Quarter: 2012Q2

REPORT INFORMATION
  Report Type: 
  Country: None (occurrence: None)
  Receive Date: 20120403
  Receipt Date: 20120330
  Transmission Date: 20120825
  Serious: No
  Sender: FDA-Public Use
  Company Number: US-PFIZER INC-2012081863

PATIENT
  Sex: Male
  Weight: 68.027 kg

DRUGS (2)
  1. TIKOSYN [Suspect]
     Dosage: 125 UG, 2X/DAY
     Route: 048
     Dates: start: 20120325
  2. PACERONE [Suspect]
     Dosage: 300 MG, 2X/DAY
     Dates: start: 20110101, end: 20120323

REACTIONS (1)
  - HEART RATE DECREASED [None]
